FAERS Safety Report 10018592 (Version 1)
Quarter: 2014Q1

REPORT INFORMATION
  Report Type: Spontaneous
  Country: US (occurrence: None)
  Receive Date: 20140314
  Receipt Date: 20140314
  Transmission Date: 20141002
  Serious: Yes (Disabling)
  Sender: FDA-Public Use
  Company Number: None

PATIENT
  Age: 64 Year
  Sex: Female
  Weight: 65.77 kg

DRUGS (1)
  1. ETODOLAC [Suspect]
     Indication: TENDONITIS
     Dosage: 1 TWICE DAILY
     Route: 048
     Dates: start: 20140225, end: 20140310

REACTIONS (11)
  - Abdominal pain [None]
  - Abdominal distension [None]
  - Dizziness [None]
  - Melaena [None]
  - Nausea [None]
  - Pallor [None]
  - Abdominal pain [None]
  - Tendonitis [None]
  - Abasia [None]
  - Abdominal pain upper [None]
  - Gastric dilatation [None]
